FAERS Safety Report 6315217-9 (Version None)
Quarter: 2009Q3

REPORT INFORMATION
  Report Type: 
  Country: None (occurrence: None)
  Receive Date: 20090819
  Receipt Date: 20090810
  Transmission Date: 20100115
  Serious: Yes (Other)
  Sender: FDA-Public Use
  Company Number: PHHY2009IT33967

PATIENT
  Sex: Female

DRUGS (2)
  1. ZOMETA [Suspect]
     Indication: METASTASES TO BREAST
     Dosage: 4 MG, QMO
     Route: 042
     Dates: start: 20061001, end: 20070331
  2. AROMASIN [Concomitant]

REACTIONS (1)
  - OSTEONECROSIS [None]
